FAERS Safety Report 16849978 (Version 3)
Quarter: 2019Q4

REPORT INFORMATION
  Report Type: Report from Study
  Country: None (occurrence: BE)
  Receive Date: 20190925
  Receipt Date: 20191016
  Transmission Date: 20200122
  Serious: Yes (Hospitalization)
  Sender: FDA-Public Use
  Company Number: BE-ABBVIE-19K-013-2937554-00

PATIENT
  Sex: Female

DRUGS (11)
  1. DUODOPA [Suspect]
     Active Substance: CARBIDOPA\LEVODOPA
     Dosage: MD=5ML, CD=3.6ML/HR DURING 16HRS, ED=2ML EVERY 6 HOURS, ND=2ML/HR DURING 8HRS
     Route: 050
     Dates: start: 20190913, end: 20190923
  2. TRAZOLAN [Concomitant]
     Active Substance: TRAZODONE HYDROCHLORIDE
     Indication: PRODUCT USED FOR UNKNOWN INDICATION
  3. PANTOMED [Concomitant]
     Indication: PRODUCT USED FOR UNKNOWN INDICATION
  4. TRAZOLAN [Concomitant]
     Active Substance: TRAZODONE HYDROCHLORIDE
  5. L-THYROXINE [Concomitant]
     Active Substance: LEVOTHYROXINE
     Indication: PRODUCT USED FOR UNKNOWN INDICATION
  6. TEMESTA [Concomitant]
     Indication: PRODUCT USED FOR UNKNOWN INDICATION
  7. DUODOPA [Suspect]
     Active Substance: CARBIDOPA\LEVODOPA
     Dosage: MD=5ML, CD=3.8ML/HR DURING 16HRS, ED=2ML EVERY 6 HOURS, ND=2ML/HR DURING 8HRS
     Route: 050
     Dates: start: 20190923
  8. L-THYROXINE [Concomitant]
     Active Substance: LEVOTHYROXINE
  9. DUODOPA [Suspect]
     Active Substance: CARBIDOPA\LEVODOPA
     Indication: PARKINSON^S DISEASE
     Dosage: MD=10ML, CD=2ML/HR DURING 16HRS, ED=1ML
     Route: 050
     Dates: start: 20150202, end: 20150203
  10. DUODOPA [Suspect]
     Active Substance: CARBIDOPA\LEVODOPA
     Dosage: DOSES CONTINUOUSLY MONITORED AND ADAPTED
     Route: 050
     Dates: start: 20150203, end: 20190913
  11. XADAGO [Concomitant]
     Active Substance: SAFINAMIDE MESYLATE
     Indication: PRODUCT USED FOR UNKNOWN INDICATION

REACTIONS (3)
  - Aggression [Not Recovered/Not Resolved]
  - Confusional state [Unknown]
  - Epilepsy [Unknown]
